FAERS Safety Report 4337848-8 (Version None)
Quarter: 2004Q2

REPORT INFORMATION
  Report Type: 
  Country: None (occurrence: None)
  Receive Date: 20040408
  Receipt Date: 20040326
  Transmission Date: 20050107
  Serious: Yes (Hospitalization)
  Sender: FDA-Public Use
  Company Number: 2004-03-0963

PATIENT
  Age: 94 Year
  Sex: Female

DRUGS (9)
  1. CLARITIN [Suspect]
     Dosage: 10 MG QD ORAL
     Route: 048
     Dates: end: 20031209
  2. SOTALEX TABLETS [Suspect]
     Dosage: 80 MG TID ORAL
     Route: 048
  3. CACIT (CALCIUM CARBONATE) [Suspect]
     Dosage: 1 TAB QD ORAL
     Route: 048
     Dates: end: 20031209
  4. CELECOXIB [Suspect]
     Dosage: 1 TAB QD ORAL
     Route: 048
     Dates: end: 20031209
  5. BETASERC [Suspect]
     Dosage: 24 MG BID ORAL
     Route: 048
     Dates: end: 20031209
  6. DAFALGAN [Suspect]
     Dosage: 2-6 DOSES QD ORAL
     Route: 048
     Dates: end: 20031209
  7. OGAST [Suspect]
     Dosage: 15 MG QD ORAL
     Route: 048
     Dates: end: 20031209
  8. NAFTAZONE [Suspect]
     Dosage: 30 MG QD ORAL
     Route: 048
     Dates: end: 20031209
  9. GINKGO BILOBA [Suspect]
     Dosage: 40 MG TID ORAL
     Route: 048
     Dates: end: 20031209

REACTIONS (5)
  - ATRIAL FIBRILLATION [None]
  - DEPRESSED LEVEL OF CONSCIOUSNESS [None]
  - ELECTROCARDIOGRAM QT PROLONGED [None]
  - FALL [None]
  - TRANSIENT ISCHAEMIC ATTACK [None]
